FAERS Safety Report 6115838-2 (Version None)
Quarter: 2009Q1

REPORT INFORMATION
  Report Type: 
  Country: None (occurrence: None)
  Receive Date: 20090311
  Receipt Date: 20090225
  Transmission Date: 20090719
  Serious: Yes (Hospitalization)
  Sender: FDA-Public Use
  Company Number: US025543

PATIENT
  Age: 53 Year
  Sex: Female
  Weight: 49.8957 kg

DRUGS (6)
  1. ACTIQ [Suspect]
     Indication: CLUSTER HEADACHE
     Dosage: 1200 UG PRN BUCCAL
     Route: 002
     Dates: start: 19990101
  2. DURAGESIC-100 [Suspect]
     Indication: CLUSTER HEADACHE
     Dosage: 200 UG Q72HR TRANSDERMAL
     Route: 062
     Dates: start: 19980101
  3. SINGULAIR [Concomitant]
  4. SYNTHROID [Concomitant]
  5. WELLBUTRIN [Concomitant]
  6. VERAPAMIL [Concomitant]

REACTIONS (2)
  - DRUG DEPENDENCE [None]
  - WITHDRAWAL SYNDROME [None]
